FAERS Safety Report 13213703 (Version 2)
Quarter: 2017Q4

REPORT INFORMATION
  Report Type: Spontaneous
  Country: US (occurrence: US)
  Receive Date: 20170209
  Receipt Date: 20171117
  Transmission Date: 20180320
  Serious: Yes (Other)
  Sender: FDA-Public Use
  Company Number: US-BAUSCH-BL-2017-003329

PATIENT
  Age: 64 Year
  Sex: Female

DRUGS (1)
  1. XIFAXAN [Suspect]
     Active Substance: RIFAXIMIN
     Indication: CHRONIC HEPATITIS C
     Route: 065

REACTIONS (8)
  - Weight decreased [Unknown]
  - Diarrhoea [Unknown]
  - Hepatic steatosis [Unknown]
  - Anal haemorrhage [Unknown]
  - Cholelithiasis [Unknown]
  - Biliary colic [Unknown]
  - Off label use [Unknown]
  - Cerebrovascular accident [Unknown]

NARRATIVE: CASE EVENT DATE: 201511
